FAERS Safety Report 10267653 (Version 1)
Quarter: 2014Q2

REPORT INFORMATION
  Report Type: Spontaneous
  Country: JP (occurrence: JP)
  Receive Date: 20140630
  Receipt Date: 20140630
  Transmission Date: 20141212
  Serious: Yes (Other)
  Sender: FDA-Public Use
  Company Number: JP-JNJFOC-20140617097

PATIENT
  Age: 53 Year
  Sex: Female

DRUGS (2)
  1. TRAMCET [Suspect]
     Indication: PAIN
     Dosage: 2 DOSES 1/DAY
     Route: 048
     Dates: start: 20140620, end: 20140622
  2. NAUZELIN [Concomitant]
     Route: 065
     Dates: start: 20140620

REACTIONS (2)
  - Loss of consciousness [Recovered/Resolved]
  - Fall [Recovered/Resolved]
